FAERS Safety Report 9592008 (Version 2)
Quarter: 2013Q4

REPORT INFORMATION
  Report Type: Spontaneous
  Country: US (occurrence: US)
  Receive Date: 20131004
  Receipt Date: 20131004
  Transmission Date: 20140711
  Serious: Yes (Other)
  Sender: FDA-Public Use
  Company Number: US-PFIZER INC-2006040823

PATIENT
  Age: 43 Year
  Sex: Female
  Weight: 94.79 kg

DRUGS (10)
  1. NEURONTIN [Suspect]
     Indication: RESTLESS LEGS SYNDROME
     Dosage: 100 MG, 3X/DAY
     Route: 065
     Dates: end: 200601
  2. NEURONTIN [Suspect]
     Indication: PAIN IN EXTREMITY
  3. LYRICA [Suspect]
     Indication: RESTLESS LEGS SYNDROME
     Route: 065
     Dates: start: 200601
  4. LYRICA [Suspect]
     Indication: PAIN IN EXTREMITY
  5. LIPITOR [Suspect]
     Indication: BLOOD TRIGLYCERIDES INCREASED
     Route: 065
     Dates: start: 2006, end: 2006
  6. PERCOCET [Concomitant]
     Route: 065
  7. HYDROCHLOROTHIAZIDE [Concomitant]
     Route: 065
  8. LISINOPRIL [Concomitant]
     Route: 065
  9. ASA [Concomitant]
     Route: 065
  10. ULTRACET [Concomitant]
     Route: 065

REACTIONS (14)
  - Hysterectomy [Unknown]
  - Tarsal tunnel syndrome [Unknown]
  - Meniscus injury [Unknown]
  - Knee arthroplasty [Unknown]
  - Diabetes mellitus [Not Recovered/Not Resolved]
  - Pain in extremity [Recovering/Resolving]
  - Weight increased [Not Recovered/Not Resolved]
  - Somnolence [Recovering/Resolving]
  - Blood triglycerides increased [Unknown]
  - Blood cholesterol increased [Unknown]
  - Burning sensation [Unknown]
  - Somnolence [Unknown]
  - Diabetic neuropathy [Unknown]
  - Drug ineffective [Not Recovered/Not Resolved]
